FAERS Safety Report 7940403-1 (Version None)
Quarter: 2011Q4

REPORT INFORMATION
  Report Type: 
  Country: None (occurrence: None)
  Receive Date: 20111127
  Receipt Date: 20111118
  Transmission Date: 20120403
  Serious: No
  Sender: FDA-Public Use
  Company Number: US-ELI_LILLY_AND_COMPANY-US201110003250

PATIENT
  Sex: Female

DRUGS (13)
  1. LATANOPROST [Concomitant]
  2. MAGNESIUM SULFATE [Concomitant]
  3. LEVOTHYROXINE SODIUM [Concomitant]
  4. COUMADIN [Concomitant]
  5. ASCORBIC ACID [Concomitant]
  6. PREDNISONE TAB [Concomitant]
  7. PLAQUENIL [Concomitant]
  8. ANTIOXIDANT                        /02147801/ [Concomitant]
  9. CALCIUM [Concomitant]
  10. FOLIC ACID [Concomitant]
  11. BENAZEPRIL HYDROCHLORIDE [Concomitant]
  12. FORTEO [Suspect]
     Indication: OSTEOPOROSIS
     Dosage: 20 UG, QD
     Route: 065
     Dates: start: 20100818
  13. GLUCOSAMINE PLUS                   /01430901/ [Concomitant]

REACTIONS (4)
  - ASTHENIA [None]
  - FATIGUE [None]
  - DIZZINESS [None]
  - NAUSEA [None]
